FAERS Safety Report 18478731 (Version 2)
Quarter: 2021Q1

REPORT INFORMATION
  Report Type: Spontaneous
  Country: JP (occurrence: JP)
  Receive Date: 20201109
  Receipt Date: 20210208
  Transmission Date: 20210419
  Serious: Yes (Hospitalization)
  Sender: FDA-Public Use
  Company Number: JP-AMGEN-JPNSP2020178762

PATIENT
  Age: 60 Year
  Sex: Male
  Weight: 64.6 kg

DRUGS (21)
  1. PARSABIV [Suspect]
     Active Substance: ETELCALCETIDE HYDROCHLORIDE
     Indication: HYPERPARATHYROIDISM SECONDARY
     Dosage: 5 MILLIGRAM,, Q56H
     Route: 010
     Dates: start: 20190520, end: 20190714
  2. PARSABIV [Suspect]
     Active Substance: ETELCALCETIDE HYDROCHLORIDE
     Dosage: 2.5 MG, Q56H
     Route: 010
     Dates: start: 20190715, end: 20200417
  3. PARSABIV [Suspect]
     Active Substance: ETELCALCETIDE HYDROCHLORIDE
     Dosage: 2.5 MG, Q84H
     Route: 010
     Dates: start: 20200420, end: 20200612
  4. BAYASPIRIN [Concomitant]
     Active Substance: ASPIRIN
     Dosage: 1 DF, EVERYDAY, IN THE MORNING
     Route: 048
  5. TEGRETOL [Concomitant]
     Active Substance: CARBAMAZEPINE
     Dosage: 2 DF, EVERYDAY, IN THE EVENING
     Route: 048
  6. LYRICA [Concomitant]
     Active Substance: PREGABALIN
     Dosage: 2 DF, EVERYDAY, IN THE MORNING
     Route: 048
  7. ROCALTROL [Concomitant]
     Active Substance: CALCITRIOL
     Dosage: 2 UG, QW
     Route: 065
     Dates: start: 20190820, end: 20191117
  8. RENIVACE [Concomitant]
     Active Substance: ENALAPRIL
     Dosage: 1 DF, EVERYDAY, IN THE EVENING
     Route: 048
  9. EURODIN [ESTAZOLAM] [Concomitant]
     Active Substance: ESTAZOLAM
     Dosage: 1 DOSAGE FORM, QD, BEFORE SLEEP
     Route: 048
  10. ROCALTROL [Concomitant]
     Active Substance: CALCITRIOL
     Dosage: 1.0 UG, QW
     Route: 065
     Dates: start: 20190415, end: 20190818
  11. DARBEPOETIN ALFA [Concomitant]
     Active Substance: DARBEPOETIN ALFA
     Dosage: 20 UG, QW
     Route: 065
     Dates: start: 20201228
  12. PRECIPITATED CALCIUM CARBONATE [Concomitant]
     Active Substance: CALCIUM CARBONATE
     Dosage: Q8H, IMMEDIATELY AFTER EACH MEAL
     Route: 048
     Dates: start: 20200202
  13. ROCALTROL [Concomitant]
     Active Substance: CALCITRIOL
     Dosage: 1 UG, QW
     Route: 065
     Dates: start: 20191118, end: 20191215
  14. DARBEPOETIN ALFA [Concomitant]
     Active Substance: DARBEPOETIN ALFA
     Dosage: 10 UG, QW, ON MONDAYS
     Route: 065
     Dates: start: 20201005, end: 20201102
  15. MUCOSTA [Concomitant]
     Active Substance: REBAMIPIDE
     Dosage: 1 DOSAGE FORM, Q8H, AFTER EACH MEAL
     Route: 048
  16. ROCALTROL [Concomitant]
     Active Substance: CALCITRIOL
     Dosage: 0.5 UG, QW
     Route: 065
     Dates: start: 20191216, end: 20200119
  17. RIONA [Concomitant]
     Active Substance: FERRIC CITRATE ANHYDROUS
     Dosage: 250 MG, Q8H, IMMEDIATELY AFTER EACH MEAL
     Route: 048
  18. DARBEPOETIN ALFA [Concomitant]
     Active Substance: DARBEPOETIN ALFA
     Dosage: 5 MICROGRAM, QWK
     Route: 065
     Dates: end: 20200928
  19. DIART [Concomitant]
     Active Substance: AZOSEMIDE
     Dosage: 1 DF, EVERYDAY, IN THE MORNING
     Route: 048
  20. PARSABIV [Suspect]
     Active Substance: ETELCALCETIDE HYDROCHLORIDE
     Dosage: 2.5 MILLIGRAM, QWK
     Route: 010
     Dates: start: 20200615, end: 20201012
  21. ALFAROL [Concomitant]
     Active Substance: ALFACALCIDOL
     Dosage: 0.25 UG, EVERYDAY, IN THE EVENING
     Route: 048
     Dates: start: 20200316

REACTIONS (1)
  - Intervertebral disc protrusion [Recovered/Resolved]

NARRATIVE: CASE EVENT DATE: 20201024
